FAERS Safety Report 7321602-9 (Version None)
Quarter: 2011Q1

REPORT INFORMATION
  Report Type: 
  Country: None (occurrence: None)
  Receive Date: 20110228
  Receipt Date: 20100720
  Transmission Date: 20110831
  Serious: No
  Sender: FDA-Public Use
  Company Number: A0871403A

PATIENT
  Age: 47 Year
  Sex: Female

DRUGS (5)
  1. ZOVIRAX [Suspect]
     Indication: GENITAL HERPES
     Route: 048
     Dates: start: 19990101
  2. VALACYCLOVIR [Suspect]
     Indication: GENITAL HERPES
     Route: 048
  3. ACYCLOVIR [Suspect]
     Indication: GENITAL HERPES
     Route: 048
     Dates: start: 19990101
  4. NO CONCURRENT MEDICATION [Concomitant]
  5. VALTREX [Suspect]
     Indication: GENITAL HERPES
     Route: 048
     Dates: start: 19990101

REACTIONS (1)
  - HEADACHE [None]
